FAERS Safety Report 6708442-6 (Version None)
Quarter: 2010Q2

REPORT INFORMATION
  Report Type: 
  Country: None (occurrence: None)
  Receive Date: 20100503
  Receipt Date: 20090417
  Transmission Date: 20101027
  Serious: No
  Sender: FDA-Public Use
  Company Number: US-ASTRAZENECA-2009UW05302

PATIENT
  Age: 51 Year
  Sex: Female
  Weight: 79.4 kg

DRUGS (4)
  1. NEXIUM [Suspect]
     Indication: GASTROOESOPHAGEAL REFLUX DISEASE
     Route: 048
     Dates: start: 20070101
  2. NEXIUM [Suspect]
     Route: 048
     Dates: start: 20090319
  3. LORAZEPAM [Concomitant]
  4. MELATONIN [Concomitant]

REACTIONS (6)
  - DYSPHAGIA [None]
  - ERUCTATION [None]
  - FATIGUE [None]
  - FLATULENCE [None]
  - NASAL CONGESTION [None]
  - OESOPHAGEAL DISORDER [None]
